FAERS Safety Report 24178704 (Version 1)
Quarter: 2024Q3

REPORT INFORMATION
  Report Type: Spontaneous
  Country: US (occurrence: US)
  Receive Date: 20240806
  Receipt Date: 20240806
  Transmission Date: 20241016
  Serious: Yes (Other)
  Sender: PFIZER
  Company Number: US-PFIZER INC-202400230096

PATIENT
  Age: 48 Year
  Sex: Male
  Weight: 113.4 kg

DRUGS (1)
  1. NURTEC ODT [Suspect]
     Active Substance: RIMEGEPANT SULFATE
     Indication: Migraine
     Dosage: UNK UNK, ALTERNATE DAY
     Dates: start: 2024

REACTIONS (1)
  - Renal impairment [Unknown]
